FAERS Safety Report 24071702 (Version 1)
Quarter: 2024Q3

REPORT INFORMATION
  Report Type: Report from Study
  Country: US (occurrence: US)
  Receive Date: 20240710
  Receipt Date: 20240710
  Transmission Date: 20241016
  Serious: No
  Sender: ROCHE
  Company Number: US-ROCHE-3529759

PATIENT
  Age: 46 Day
  Sex: Female
  Weight: 3.97 kg

DRUGS (1)
  1. EVRYSDI [Suspect]
     Active Substance: RISDIPLAM
     Indication: Spinal muscular atrophy
     Dosage: 0.8 ML
     Route: 048
     Dates: start: 20240229

REACTIONS (1)
  - Pyrexia [Unknown]
